FAERS Safety Report 20981913 (Version 3)
Quarter: 2022Q3

REPORT INFORMATION
  Report Type: Report from Study
  Country: US (occurrence: US)
  Receive Date: 20220620
  Receipt Date: 20220624
  Transmission Date: 20221027
  Serious: Yes (Hospitalization, Other)
  Sender: FDA-Public Use
  Company Number: US-NOVARTISTESTPH-NVSC2022US140576

PATIENT
  Sex: Male

DRUGS (1)
  1. ENTRESTO [Suspect]
     Active Substance: SACUBITRIL\VALSARTAN
     Indication: Product used for unknown indication
     Dosage: 50 MG (24/26 MG: SACUBITRIL 24.3 MG, VALSARTAN 25.7 MG), BID
     Route: 048
     Dates: start: 20181218, end: 20220414

REACTIONS (3)
  - COVID-19 [Unknown]
  - Cardiac failure [Unknown]
  - Amnesia [Unknown]
